FAERS Safety Report 8106930-1 (Version None)
Quarter: 2012Q1

REPORT INFORMATION
  Report Type: 
  Country: None (occurrence: None)
  Receive Date: 20120202
  Receipt Date: 20120127
  Transmission Date: 20120608
  Serious: Yes (Other)
  Sender: FDA-Public Use
  Company Number: US-SANOFI-AVENTIS-2012SA005841

PATIENT
  Sex: Male

DRUGS (1)
  1. JEVTANA KIT [Suspect]
     Route: 041

REACTIONS (3)
  - RESPIRATORY DISTRESS [None]
  - DYSPNOEA [None]
  - FLUID RETENTION [None]
